FAERS Safety Report 24993088 (Version 1)
Quarter: 2025Q1

REPORT INFORMATION
  Report Type: Spontaneous
  Country: US (occurrence: US)
  Receive Date: 20250221
  Receipt Date: 20250221
  Transmission Date: 20250408
  Serious: Yes (Other)
  Sender: CSL BEHRING
  Company Number: US-BEH-2025196196

PATIENT
  Sex: Female

DRUGS (1)
  1. HAEGARDA [Suspect]
     Active Substance: HUMAN C1-ESTERASE INHIBITOR
     Indication: Hereditary angioedema
     Route: 065
     Dates: end: 202407

REACTIONS (6)
  - Thrombosis [Unknown]
  - Injection site bruising [Unknown]
  - Rash [Unknown]
  - Rash pruritic [Unknown]
  - Skin burning sensation [Unknown]
  - Scar [Unknown]
